FAERS Safety Report 23520757 (Version 2)
Quarter: 2024Q1

REPORT INFORMATION
  Report Type: 
  Country: None (occurrence: None)
  Receive Date: 20240214
  Receipt Date: 20240214
  Transmission Date: 20240410
  Serious: No
  Sender: FDA-Public Use
  Company Number: ROCHE-3507331

PATIENT
  Age: 41 Year

DRUGS (1)
  1. OCREVUS [Suspect]
     Active Substance: OCRELIZUMAB
     Dosage: 300MG AT DAY 0 AND 14, THEN 600 MG EVERY 6 MONTHS
     Dates: start: 20230815

REACTIONS (3)
  - Ear infection [None]
  - Sinusitis [None]
  - COVID-19 [None]

NARRATIVE: CASE EVENT DATE: 20240201
